FAERS Safety Report 11584037 (Version 1)
Quarter: 2015Q3

REPORT INFORMATION
  Report Type: Spontaneous
  Country: US (occurrence: None)
  Receive Date: 20150930
  Receipt Date: 20150930
  Transmission Date: 20151125
  Serious: Yes (Hospitalization)
  Sender: FDA-Public Use
  Company Number: None

PATIENT
  Age: 73 Year
  Sex: Female
  Weight: 90.72 kg

DRUGS (10)
  1. FUROSEMIDE. [Concomitant]
     Active Substance: FUROSEMIDE
  2. LOSARTAN. [Concomitant]
     Active Substance: LOSARTAN
  3. GLYBURIDE. [Concomitant]
     Active Substance: GLYBURIDE
  4. CARVEDILOL. [Concomitant]
     Active Substance: CARVEDILOL
  5. OXYBUTYNIN [Concomitant]
     Active Substance: OXYBUTYNIN
  6. LYRICA [Suspect]
     Active Substance: PREGABALIN
     Indication: NEUROPATHY PERIPHERAL
     Route: 048
     Dates: start: 20150817, end: 20150821
  7. METFORMIN [Concomitant]
     Active Substance: METFORMIN HYDROCHLORIDE
  8. LEVOTHYROXINE. [Concomitant]
     Active Substance: LEVOTHYROXINE
  9. PANTAPRAZOLE [Concomitant]
  10. NORCO [Concomitant]
     Active Substance: ACETAMINOPHEN\HYDROCODONE BITARTRATE

REACTIONS (5)
  - Fall [None]
  - Confusional state [None]
  - Catatonia [None]
  - Coordination abnormal [None]
  - Muscle spasms [None]

NARRATIVE: CASE EVENT DATE: 20150929
